FAERS Safety Report 23687131 (Version 1)
Quarter: 2024Q1

REPORT INFORMATION
  Report Type: Spontaneous
  Country: US (occurrence: US)
  Receive Date: 20240329
  Receipt Date: 20240329
  Transmission Date: 20240410
  Serious: Yes (Other)
  Sender: FDA-Public Use
  Company Number: US-002147023-NVSC2024US065157

PATIENT

DRUGS (1)
  1. KESIMPTA [Suspect]
     Active Substance: OFATUMUMAB
     Indication: Product used for unknown indication
     Dosage: UNK
     Route: 065

REACTIONS (8)
  - Herpes pharyngitis [Unknown]
  - Oropharyngeal pain [Unknown]
  - Mouth ulceration [Unknown]
  - Upper respiratory tract congestion [Not Recovered/Not Resolved]
  - Conjunctivitis [Unknown]
  - Anxiety [Unknown]
  - Upper respiratory tract infection [Unknown]
  - Product dose omission issue [Unknown]
